FAERS Safety Report 9989313 (Version 2)
Quarter: 2014Q1

REPORT INFORMATION
  Report Type: Spontaneous
  Country: DE (occurrence: DE)
  Receive Date: 20140310
  Receipt Date: 20140310
  Transmission Date: 20141002
  Serious: Yes (Hospitalization)
  Sender: FDA-Public Use
  Company Number: DE-SA-2014SA010105

PATIENT
  Age: 46 Year
  Sex: Female

DRUGS (9)
  1. LEMTRADA [Suspect]
     Indication: ENCEPHALOMYELITIS
     Route: 065
     Dates: start: 20140113, end: 20140118
  2. URBASON [Concomitant]
     Indication: DRUG THERAPY
     Route: 065
  3. URBASON [Concomitant]
     Indication: DRUG THERAPY
     Route: 042
     Dates: start: 20140113, end: 20140117
  4. ACICLOVIR [Concomitant]
     Dates: start: 20140113, end: 20140115
  5. ACICLOVIR [Concomitant]
     Dosage: PRESCRIBED TILL 17-FEB-2014
     Route: 048
     Dates: end: 20140217
  6. FLUOXETINE [Concomitant]
  7. PANTOZOL [Concomitant]
     Route: 048
  8. NOVALGIN [Concomitant]
  9. SAROTEN [Concomitant]

REACTIONS (3)
  - Meningitis listeria [Recovering/Resolving]
  - Headache [Recovering/Resolving]
  - Acute disseminated encephalomyelitis [Recovering/Resolving]
